FAERS Safety Report 9351569 (Version 2)
Quarter: 2013Q2

REPORT INFORMATION
  Report Type: Report from Study
  Country: BR (occurrence: BR)
  Receive Date: 20130617
  Receipt Date: 20130628
  Transmission Date: 20140414
  Serious: Yes (Death)
  Sender: FDA-Public Use
  Company Number: PHHO2013BR007971

PATIENT
  Age: 61 Year
  Sex: Male
  Weight: 81.6 kg

DRUGS (6)
  1. PROGRAF [Suspect]
     Indication: RENAL TRANSPLANT
     Dosage: 8 MG, BID
     Route: 048
     Dates: start: 20130510, end: 20130512
  2. PROGRAF [Suspect]
     Dosage: 10 MG, BID
     Route: 048
     Dates: start: 20130516
  3. MYFORTIC [Suspect]
     Indication: RENAL TRANSPLANT
     Dosage: 720 MG, BID
     Dates: start: 20130510
  4. PREDNISONE [Suspect]
     Indication: RENAL TRANSPLANT
     Dosage: 40 MG, UNK
     Dates: start: 20130510
  5. TRIMETOPRIM + SULFAMETOXAZOL [Concomitant]
     Indication: PROPHYLAXIS
     Dosage: 480 MG, BID
     Dates: start: 20130510
  6. GANCICLOVIR [Concomitant]
     Indication: PROPHYLAXIS
     Dosage: 100 MG, TID
     Dates: start: 20130510

REACTIONS (6)
  - Sepsis [Fatal]
  - Spleen disorder [Fatal]
  - Gastric haemorrhage [Fatal]
  - Urinary bladder haemorrhage [Fatal]
  - Thrombosis [Fatal]
  - Pulmonary alveolar haemorrhage [Fatal]
